FAERS Safety Report 25996719 (Version 3)
Quarter: 2025Q4

REPORT INFORMATION
  Report Type: Spontaneous
  Country: US (occurrence: US)
  Receive Date: 20251104
  Receipt Date: 20251224
  Transmission Date: 20260117
  Serious: Yes (Hospitalization, Disabling, Other)
  Sender: GILEAD
  Company Number: US-GILEAD-2025-0734653

PATIENT
  Age: 53 Year
  Sex: Female
  Weight: 97.1 kg

DRUGS (1)
  1. YESCARTA [Suspect]
     Active Substance: AXICABTAGENE CILOLEUCEL
     Indication: Diffuse large B-cell lymphoma
     Dosage: 68 ML
     Route: 065
     Dates: start: 20251013, end: 20251013

REACTIONS (2)
  - Immune effector cell-associated neurotoxicity syndrome [Recovered/Resolved]
  - Cytokine release syndrome [Recovered/Resolved]

NARRATIVE: CASE EVENT DATE: 20251014
